FAERS Safety Report 6371645-7 (Version None)
Quarter: 2009Q3

REPORT INFORMATION
  Report Type: 
  Country: None (occurrence: None)
  Receive Date: 20090923
  Receipt Date: 20080520
  Transmission Date: 20100115
  Serious: No
  Sender: FDA-Public Use
  Company Number: US-ASTRAZENECA-2008UW05126

PATIENT
  Age: 18148 Day
  Sex: Female
  Weight: 73.9 kg

DRUGS (26)
  1. SEROQUEL [Suspect]
     Indication: SLEEP DISORDER
     Route: 048
     Dates: start: 19980101
  2. SEROQUEL [Suspect]
     Indication: RESTLESSNESS
     Route: 048
     Dates: start: 19980101
  3. SEROQUEL [Suspect]
     Indication: AFFECTIVE DISORDER
     Route: 048
     Dates: start: 19980101
  4. SEROQUEL [Suspect]
     Dosage: 200-600 MG
     Route: 048
     Dates: start: 19980101
  5. SEROQUEL [Suspect]
     Dosage: 200-600 MG
     Route: 048
     Dates: start: 19980101
  6. SEROQUEL [Suspect]
     Dosage: 200-600 MG
     Route: 048
     Dates: start: 19980101
  7. ZOLOFT [Concomitant]
     Dates: start: 20000701
  8. ZOCOR [Concomitant]
  9. METFORMIN HCL [Concomitant]
  10. COZAAR [Concomitant]
  11. RANITIDINE [Concomitant]
  12. HYDROCODONE [Concomitant]
  13. GABAPENTIN [Concomitant]
  14. ASPIRIN [Concomitant]
  15. LORATADINE [Concomitant]
  16. DEPAKOTE ER [Concomitant]
  17. ZETIA [Concomitant]
  18. TRAZODONE [Concomitant]
  19. TOPAMAX [Concomitant]
  20. KLONOPIN [Concomitant]
     Dates: end: 20061129
  21. IMIPRAMINE [Concomitant]
     Dates: start: 20050427
  22. FLUTICASONE [Concomitant]
  23. TRAMADOL HCL [Concomitant]
  24. LISINOPRIL [Concomitant]
  25. LOVASTATIN [Concomitant]
  26. GABITRIL [Concomitant]

REACTIONS (14)
  - ANXIETY [None]
  - ASTHENIA [None]
  - BIPOLAR DISORDER [None]
  - BIPOLAR I DISORDER [None]
  - CONSTIPATION [None]
  - HYPERTENSION [None]
  - LIMB INJURY [None]
  - MOOD SWINGS [None]
  - NERVOUSNESS [None]
  - PANIC ATTACK [None]
  - PERSONALITY DISORDER [None]
  - STRESS [None]
  - TYPE 2 DIABETES MELLITUS [None]
  - VOMITING [None]
